FAERS Safety Report 26116009 (Version 1)
Quarter: 2025Q4

REPORT INFORMATION
  Report Type: Spontaneous
  Country: CN (occurrence: CN)
  Receive Date: 20251203
  Receipt Date: 20251203
  Transmission Date: 20260118
  Serious: Yes (Other)
  Sender: ACCORD
  Company Number: None

PATIENT
  Age: 57 Year
  Sex: Male

DRUGS (8)
  1. FLUOROURACIL [Suspect]
     Active Substance: FLUOROURACIL
     Indication: Oesophageal squamous cell carcinoma
     Dosage: 1 GRAM, QD
     Route: 042
     Dates: start: 20250826
  2. CISPLATIN [Suspect]
     Active Substance: CISPLATIN
     Indication: Oesophageal squamous cell carcinoma
     Dosage: 40 MILLIGRAM, QD
     Route: 042
     Dates: start: 20250826
  3. SERPLULIMAB [Suspect]
     Active Substance: SERPLULIMAB
     Indication: Oesophageal squamous cell carcinoma
     Dosage: STRENGTH: 10 MILLIGRAM PER MILLILITRE?300 MILLIGRAM, QD
     Route: 042
     Dates: start: 20250826, end: 20250826
  4. FLUOROURACIL [Suspect]
     Active Substance: FLUOROURACIL
     Indication: Oesophageal squamous cell carcinoma
     Dosage: 1 GRAM, QD
     Route: 042
     Dates: start: 20251011, end: 20251013
  5. CISPLATIN [Suspect]
     Active Substance: CISPLATIN
     Indication: Oesophageal squamous cell carcinoma
     Dosage: 40 MILLIGRAM, QD
     Route: 042
     Dates: start: 20251011, end: 20251012
  6. SERPLULIMAB [Suspect]
     Active Substance: SERPLULIMAB
     Indication: Oesophageal squamous cell carcinoma
     Dosage: STRENGTH: 10 MILLIGRAM PER MILLILITRE?300 MILLIGRAM, QD
     Route: 042
     Dates: start: 20250918, end: 20250918
  7. CISPLATIN [Suspect]
     Active Substance: CISPLATIN
     Indication: Oesophageal squamous cell carcinoma
     Dosage: 40 MILLIGRAM, QD
     Route: 042
     Dates: start: 20250918
  8. FLUOROURACIL [Suspect]
     Active Substance: FLUOROURACIL
     Indication: Oesophageal squamous cell carcinoma
     Dosage: 1 GRAM, QD
     Route: 042
     Dates: start: 20250918

REACTIONS (1)
  - Interstitial lung disease [Not Recovered/Not Resolved]

NARRATIVE: CASE EVENT DATE: 20251026
